FAERS Safety Report 5194304-5 (Version None)
Quarter: 2006Q4

REPORT INFORMATION
  Report Type: 
  Country: None (occurrence: None)
  Receive Date: 20061228
  Receipt Date: 20061028
  Transmission Date: 20070319
  Serious: Yes (Other)
  Sender: FDA-Public Use
  Company Number: US-PFIZER INC-2006136072

PATIENT
  Age: 89 Year
  Sex: Male
  Weight: 107 kg

DRUGS (2)
  1. CELEBREX [Suspect]
     Indication: ARTHRALGIA
  2. CELEBREX [Suspect]
     Indication: OSTEOARTHRITIS

REACTIONS (5)
  - EOSINOPHIL COUNT INCREASED [None]
  - INFECTION [None]
  - INFLAMMATION [None]
  - PRURITUS [None]
  - RASH [None]
